FAERS Safety Report 5163990-8 (Version None)
Quarter: 2006Q4

REPORT INFORMATION
  Report Type: 
  Country: None (occurrence: None)
  Receive Date: 20061124
  Receipt Date: 20061109
  Transmission Date: 20070319
  Serious: Yes (Death)
  Sender: FDA-Public Use
  Company Number: 2006139816

PATIENT
  Age: 48 Year

DRUGS (3)
  1. VIAGRA [Suspect]
     Dosage: ORAL
     Route: 048
     Dates: end: 20050101
  2. DIPHENHYDRAMINE HCL [Suspect]
     Dosage: ORAL
     Route: 048
     Dates: end: 20050101
  3. FENTANYL [Suspect]
     Dosage: TRANSDERMAL
     Dates: end: 20050101

REACTIONS (2)
  - CARDIAC ARREST [None]
  - RESPIRATORY ARREST [None]
